FAERS Safety Report 5083453-8 (Version None)
Quarter: 2006Q3

REPORT INFORMATION
  Report Type: 
  Country: None (occurrence: None)
  Receive Date: 20060818
  Receipt Date: 20060808
  Transmission Date: 20061208
  Serious: Yes (Disabling)
  Sender: FDA-Public Use
  Company Number: 2006UW15862

PATIENT
  Age: 79 Year
  Sex: Female

DRUGS (5)
  1. CRESTOR [Suspect]
     Route: 048
     Dates: start: 20040114, end: 20040201
  2. CRESTOR [Suspect]
     Dosage: TITRATED UP
     Route: 048
     Dates: start: 20040213, end: 20040601
  3. HYDROCHLOROTHIAZIDE [Concomitant]
  4. ACIPHEX [Concomitant]
  5. ZYRTEC [Concomitant]

REACTIONS (4)
  - BLOOD CREATINE PHOSPHOKINASE INCREASED [None]
  - GAIT DISTURBANCE [None]
  - MYOGLOBIN BLOOD INCREASED [None]
  - PAIN IN EXTREMITY [None]
